FAERS Safety Report 11279615 (Version 1)
Quarter: 2015Q3

REPORT INFORMATION
  Report Type: Spontaneous
  Country: US (occurrence: None)
  Receive Date: 20150715
  Receipt Date: 20150715
  Transmission Date: 20151125
  Serious: Yes (Other)
  Sender: FDA-Public Use
  Company Number: None

PATIENT
  Age: 56 Year
  Sex: Female
  Weight: 112.49 kg

DRUGS (15)
  1. ARMOUR THYROID [Concomitant]
     Active Substance: THYROID, PORCINE\THYROID, UNSPECIFIED
  2. IBUPROFEN. [Concomitant]
     Active Substance: IBUPROFEN
  3. NUVIGIL [Concomitant]
     Active Substance: ARMODAFINIL
  4. FLUTICASONE [Concomitant]
     Active Substance: FLUTICASONE\FLUTICASONE PROPIONATE
  5. VAILIUM [Concomitant]
  6. PREVACID [Concomitant]
     Active Substance: LANSOPRAZOLE
  7. MONTELUKAST [Concomitant]
     Active Substance: MONTELUKAST SODIUM
  8. CLARITIN [Concomitant]
     Active Substance: LORATADINE
  9. HYOSCYAMINE. [Suspect]
     Active Substance: HYOSCYAMINE
     Indication: DIARRHOEA
     Dosage: Q 4 TO 6 HRS; PRN; TAKEN UNDER THE TONGUE
     Dates: start: 20150710, end: 20150713
  10. DYAZIDE [Concomitant]
     Active Substance: HYDROCHLOROTHIAZIDE\TRIAMTERENE
  11. ALBUTEROL. [Concomitant]
     Active Substance: ALBUTEROL
  12. VITAMIN D3 [Concomitant]
     Active Substance: CHOLECALCIFEROL
  13. VSL#3 [Concomitant]
     Active Substance: PROBIOTICS NOS
  14. HYOSCYAMINE. [Suspect]
     Active Substance: HYOSCYAMINE
     Indication: ABDOMINAL PAIN LOWER
     Dosage: Q 4 TO 6 HRS; PRN; TAKEN UNDER THE TONGUE
     Dates: start: 20150710, end: 20150713
  15. CPAP [Concomitant]
     Active Substance: DEVICE

REACTIONS (1)
  - Toothache [None]

NARRATIVE: CASE EVENT DATE: 20150710
